FAERS Safety Report 8185225-4 (Version None)
Quarter: 2012Q1

REPORT INFORMATION
  Report Type: 
  Country: None (occurrence: None)
  Receive Date: 20120305
  Receipt Date: 20120223
  Transmission Date: 20120608
  Serious: Yes (Hospitalization, Other)
  Sender: FDA-Public Use
  Company Number: PHHY2011US51207

PATIENT
  Sex: Female

DRUGS (3)
  1. TOBI [Suspect]
     Indication: CYSTIC FIBROSIS
     Dosage: 300 MG, BID (28 DAYS ON AND 28 DAYS OFF)
  2. PULMOZYME [Concomitant]
  3. ZYVOX [Concomitant]

REACTIONS (13)
  - HYPERTENSION [None]
  - MALAISE [None]
  - RASH [None]
  - COUGH [None]
  - HYPERSENSITIVITY [None]
  - PNEUMONIA [None]
  - LUNG DISORDER [None]
  - THROMBOSIS [None]
  - PYREXIA [None]
  - ERYTHEMA INFECTIOSUM [None]
  - LUNG INFILTRATION [None]
  - DIZZINESS [None]
  - URTICARIA [None]
